FAERS Safety Report 15886965 (Version 1)
Quarter: 2019Q1

REPORT INFORMATION
  Report Type: Spontaneous
  Country: JP (occurrence: JP)
  Receive Date: 20190130
  Receipt Date: 20190130
  Transmission Date: 20190417
  Serious: Yes (Other)
  Sender: FDA-Public Use
  Company Number: JP-ROCHE-2255206

PATIENT
  Age: 80 Year
  Sex: Female

DRUGS (3)
  1. OXALIPLATIN. [Concomitant]
     Active Substance: OXALIPLATIN
     Indication: GASTRIC CANCER
     Dosage: DOSAGE IS UNCERTAIN.
     Route: 041
  2. XELODA [Suspect]
     Active Substance: CAPECITABINE
     Dosage: DOSAGE IS UNCERTAIN.
     Route: 048
     Dates: start: 201810
  3. XELODA [Suspect]
     Active Substance: CAPECITABINE
     Indication: GASTRIC CANCER
     Dosage: DOSAGE IS UNCERTAIN.
     Route: 048
     Dates: start: 2018

REACTIONS (2)
  - Metastases to lung [Unknown]
  - Neutrophil count decreased [Unknown]

NARRATIVE: CASE EVENT DATE: 2018
